FAERS Safety Report 11008527 (Version 1)
Quarter: 2015Q1

REPORT INFORMATION
  Report Type: Spontaneous
  Country: US (occurrence: None)
  Receive Date: 20150326
  Receipt Date: 20150326
  Transmission Date: 20150721
  Serious: No
  Sender: FDA-Public Use
  Company Number: 1000073547

PATIENT
  Sex: Male

DRUGS (2)
  1. CHARCOAL [Concomitant]
     Active Substance: ACTIVATED CHARCOAL
  2. LINZESS [Suspect]
     Active Substance: LINACLOTIDE

REACTIONS (3)
  - Flatulence [None]
  - Expired product administered [None]
  - Diarrhoea [None]
